FAERS Safety Report 8767339 (Version 1)
Quarter: 2012Q4

REPORT INFORMATION
  Report Type: 
  Country: DE (occurrence: DE)
  Receive Date: 20120904
  Receipt Date: 20120904
  Transmission Date: 20130627
  Serious: Yes (Hospitalization, Disabling)
  Sender: FDA-Public Use
  Company Number: DE-GLAXOSMITHKLINE-D0076904A

PATIENT
  Sex: Female
  Weight: 72 kg

DRUGS (5)
  1. ROPINIROLE [Suspect]
     Indication: RESTLESS LEGS SYNDROME
     Route: 065
  2. REQUIP [Suspect]
     Indication: RESTLESS LEGS SYNDROME
     Route: 065
     Dates: start: 201101
  3. LYRICA [Suspect]
     Route: 065
  4. ATENOLOL [Suspect]
     Route: 065
  5. METFORMIN [Suspect]
     Route: 065

REACTIONS (6)
  - Nausea [Unknown]
  - Malaise [Unknown]
  - Pruritus generalised [Unknown]
  - Blister [Unknown]
  - Skin ulcer [Unknown]
  - Hypoaesthesia [Unknown]
